FAERS Safety Report 19229535 (Version 1)
Quarter: 2021Q2

REPORT INFORMATION
  Report Type: Spontaneous
  Country: US (occurrence: US)
  Receive Date: 20210506
  Receipt Date: 20210506
  Transmission Date: 20210717
  Serious: Yes (Life-Threatening, Hospitalization)
  Sender: FDA-Public Use
  Company Number: None

PATIENT
  Age: 71 Year
  Sex: Female
  Weight: 83.52 kg

DRUGS (6)
  1. GAMMAGARD [Suspect]
     Active Substance: HUMAN IMMUNOGLOBULIN G
     Indication: DERMATOMYOSITIS
     Dosage: ?          OTHER FREQUENCY:FOR 2 DAYS Q6WEEKS;?
     Route: 041
     Dates: start: 20200612
  2. CLONIDINE 0.1MG PO [Concomitant]
  3. SOLUMEDROL 30MG IVP [Concomitant]
  4. PEPCID 20MG IVP [Concomitant]
  5. TYLENOL 1000MG PO [Concomitant]
  6. ZYRTEC 10MG PO [Concomitant]

REACTIONS (2)
  - Hypertension [None]
  - Infusion related reaction [None]

NARRATIVE: CASE EVENT DATE: 20210506
